FAERS Safety Report 9055227 (Version 2)
Quarter: 2013Q2

REPORT INFORMATION
  Report Type: Report from Study
  Country: DE (occurrence: DE)
  Receive Date: 20130206
  Receipt Date: 20130530
  Transmission Date: 20140414
  Serious: Yes (Other)
  Sender: FDA-Public Use
  Company Number: DE-UCBSA-077575

PATIENT
  Sex: Male

DRUGS (4)
  1. VIMPAT [Suspect]
     Indication: EPILEPSY
     Dosage: DAILY DOSE: 100 MG
     Dates: start: 20081001
  2. VIMPAT [Suspect]
     Indication: EPILEPSY
     Dosage: 200 MG
     Dates: end: 2009
  3. VIMPAT [Suspect]
     Indication: EPILEPSY
     Dosage: 400 MG
     Dates: start: 2009, end: 20090330
  4. LEVETIRACETAM [Concomitant]
     Indication: EPILEPSY
     Dosage: DAILY DOSE:1750 MG

REACTIONS (2)
  - Convulsion [Unknown]
  - Drug ineffective [Recovered/Resolved]
